FAERS Safety Report 6138325-4 (Version None)
Quarter: 2009Q1

REPORT INFORMATION
  Report Type: 
  Country: None (occurrence: None)
  Receive Date: 20090327
  Receipt Date: 20090327
  Transmission Date: 20090719
  Serious: Yes (Hospitalization)
  Sender: FDA-Public Use
  Company Number: None

PATIENT
  Sex: Female
  Weight: 74.8435 kg

DRUGS (2)
  1. LEVAQUIN [Suspect]
     Indication: BRONCHITIS
     Dates: start: 20090323, end: 20090323
  2. LEVAQUIN [Suspect]
     Indication: SINUSITIS
     Dates: start: 20090323, end: 20090323

REACTIONS (21)
  - ACTIVITIES OF DAILY LIVING IMPAIRED [None]
  - AGGRESSION [None]
  - AGITATION [None]
  - ANGER [None]
  - CRYING [None]
  - DEPRESSED MOOD [None]
  - DIZZINESS [None]
  - DRUG INEFFECTIVE [None]
  - DYSPNOEA [None]
  - FATIGUE [None]
  - GAIT DISTURBANCE [None]
  - HYPERVENTILATION [None]
  - INAPPROPRIATE AFFECT [None]
  - INSOMNIA [None]
  - MUSCLE TWITCHING [None]
  - POOR QUALITY SLEEP [None]
  - PSYCHOTIC DISORDER [None]
  - SPEECH DISORDER [None]
  - THERAPEUTIC AGENT TOXICITY [None]
  - THINKING ABNORMAL [None]
  - TREMOR [None]
